FAERS Safety Report 8623254-4 (Version None)
Quarter: 2012Q3

REPORT INFORMATION
  Report Type: 
  Country: None (occurrence: None)
  Receive Date: 20120827
  Receipt Date: 20120816
  Transmission Date: 20120928
  Serious: Yes (Disabling, Other)
  Sender: FDA-Public Use
  Company Number: CN-ASTRAZENECA-2011SE19754

PATIENT
  Age: 11 Year
  Sex: Male
  Weight: 25 kg

DRUGS (5)
  1. DEXAMETHASONE [Concomitant]
     Route: 042
     Dates: start: 20060101, end: 20100101
  2. THEOPHYLLINE [Concomitant]
     Indication: ASTHMA
     Route: 048
     Dates: start: 20060101
  3. PULMICORT [Suspect]
     Indication: ASTHMA
     Route: 055
     Dates: start: 20060101, end: 20100101
  4. SYMBICORT [Suspect]
     Indication: ASTHMA
     Dosage: 80/4.5 UG BID
     Route: 055
     Dates: start: 20061201, end: 20100101
  5. DEXAMETHASONE [Concomitant]
     Route: 048
     Dates: start: 20060101, end: 20100101

REACTIONS (1)
  - OSTEONECROSIS [None]
